FAERS Safety Report 6626066-6 (Version None)
Quarter: 2010Q1

REPORT INFORMATION
  Report Type: 
  Country: None (occurrence: None)
  Receive Date: 20100310
  Receipt Date: 20100303
  Transmission Date: 20100710
  Serious: Yes (Other)
  Sender: FDA-Public Use
  Company Number: A0848034A

PATIENT
  Age: 43 Year
  Sex: Female

DRUGS (3)
  1. LAMICTAL CD [Suspect]
     Indication: BIPOLAR DISORDER
     Dosage: 200MG TWICE PER DAY
     Route: 048
     Dates: start: 20070701
  2. LAMOTRIGINE [Suspect]
     Indication: BIPOLAR DISORDER
     Dosage: 200MG TWICE PER DAY
     Route: 048
     Dates: end: 20091101
  3. NO CONCURRENT MEDICATION [Concomitant]

REACTIONS (6)
  - ASTHENIA [None]
  - FEELING ABNORMAL [None]
  - HYPOTHYROIDISM [None]
  - INSOMNIA [None]
  - WEIGHT DECREASED [None]
  - WEIGHT INCREASED [None]
